FAERS Safety Report 10241444 (Version 1)
Quarter: 2014Q2

REPORT INFORMATION
  Report Type: Spontaneous
  Country: NO (occurrence: NO)
  Receive Date: 20140617
  Receipt Date: 20140617
  Transmission Date: 20141212
  Serious: Yes (Life-Threatening, Hospitalization, Other)
  Sender: FDA-Public Use
  Company Number: NO-ACTAVIS-2014-12517

PATIENT
  Age: 30 Year
  Sex: Female
  Weight: 67 kg

DRUGS (2)
  1. CETIRIZIN ACTAVIS [Suspect]
     Indication: HYPERSENSITIVITY
     Dosage: 10 MG, DAILY
     Route: 048
     Dates: start: 20100301, end: 20100520
  2. DEPO-PROVERA [Suspect]
     Indication: CONTRACEPTION
     Dosage: 1 ML, THREE TIMES PER MONTH
     Route: 065
     Dates: start: 20010101, end: 20101001

REACTIONS (3)
  - Deep vein thrombosis [Recovered/Resolved with Sequelae]
  - Nausea [Recovered/Resolved]
  - Dizziness [Recovered/Resolved]
